FAERS Safety Report 8343960-9 (Version None)
Quarter: 2012Q2

REPORT INFORMATION
  Report Type: 
  Country: None (occurrence: None)
  Receive Date: 20120508
  Receipt Date: 20120503
  Transmission Date: 20120825
  Serious: Yes (Hospitalization, Other)
  Sender: FDA-Public Use
  Company Number: MX-ABBOTT-12P-107-0921829-00

PATIENT
  Sex: Female
  Weight: 46 kg

DRUGS (6)
  1. SULINDACO [Concomitant]
     Indication: RHEUMATOID ARTHRITIS
     Route: 048
     Dates: start: 20050101
  2. FERROUS SULFATE TAB [Concomitant]
     Indication: MINERAL SUPPLEMENTATION
     Route: 048
     Dates: start: 20050101
  3. HUMIRA [Suspect]
     Indication: RHEUMATOID ARTHRITIS
     Route: 058
     Dates: start: 20101001, end: 20110401
  4. ALCITROL [Concomitant]
     Indication: MEDICAL DIET
     Route: 048
     Dates: start: 20050101
  5. ESCLEROVITAN [Concomitant]
     Indication: MEDICAL DIET
     Route: 048
     Dates: start: 20050101
  6. ACETAMINOPHEN [Concomitant]
     Indication: RHEUMATOID ARTHRITIS
     Route: 048
     Dates: start: 20050101

REACTIONS (14)
  - PNEUMONIA [None]
  - IMMUNE SYSTEM DISORDER [None]
  - OCULAR HYPERAEMIA [None]
  - EPISTAXIS [None]
  - RESPIRATORY DISORDER [None]
  - LIVER DISORDER [None]
  - GASTRIC DISORDER [None]
  - OEDEMA PERIPHERAL [None]
  - CARDIAC DISORDER [None]
  - SKIN LESION [None]
  - ORAL DISORDER [None]
  - FREQUENT BOWEL MOVEMENTS [None]
  - DRY EYE [None]
  - NEPHROPATHY [None]
